FAERS Safety Report 15756013 (Version 1)
Quarter: 2018Q4

REPORT INFORMATION
  Report Type: Spontaneous
  Country: US (occurrence: US)
  Receive Date: 20181223
  Receipt Date: 20181223
  Transmission Date: 20190205
  Serious: Yes (Disabling)
  Sender: FDA-Public Use
  Company Number: None

PATIENT
  Age: 32 Year
  Sex: Female
  Weight: 51.26 kg

DRUGS (1)
  1. CIPROFLOXACIN, STRONG AN [Suspect]
     Active Substance: CIPROFLOXACIN
     Indication: URINARY TRACT INFECTION
     Route: 048

REACTIONS (4)
  - Asthenia [None]
  - Hypoaesthesia [None]
  - Depressed level of consciousness [None]
  - Feeling hot [None]

NARRATIVE: CASE EVENT DATE: 20180318
